FAERS Safety Report 9592901 (Version 1)
Quarter: 2013Q4

REPORT INFORMATION
  Report Type: Spontaneous
  Country: US (occurrence: US)
  Receive Date: 20131004
  Receipt Date: 20131004
  Transmission Date: 20140711
  Serious: Yes (Other)
  Sender: FDA-Public Use
  Company Number: US-BAYER-2013-116748

PATIENT
  Sex: Female

DRUGS (1)
  1. MIRENA [Suspect]
     Indication: CONTRACEPTION
     Dosage: 20 MCG/24HR, CONT
     Route: 015
     Dates: start: 200905, end: 201302

REACTIONS (6)
  - Abortion spontaneous [None]
  - Human chorionic gonadotropin decreased [None]
  - Uterine disorder [None]
  - Rash [Recovered/Resolved]
  - Migraine [Recovered/Resolved]
  - Depression [None]
